FAERS Safety Report 24555840 (Version 1)
Quarter: 2024Q4

REPORT INFORMATION
  Report Type: Spontaneous
  Country: GB (occurrence: GB)
  Receive Date: 20241028
  Receipt Date: 20241028
  Transmission Date: 20250115
  Serious: Yes (Life-Threatening, Hospitalization, Other)
  Sender: PFIZER
  Company Number: None

PATIENT
  Age: 59 Year
  Sex: Male
  Weight: 98 kg

DRUGS (6)
  1. ATRACURIUM BESYLATE [Suspect]
     Active Substance: ATRACURIUM BESYLATE
     Dosage: UNK
  2. CEFUROXIME [Suspect]
     Active Substance: CEFUROXIME
     Indication: Prophylaxis
     Dosage: 1500 MG
     Dates: start: 20241023, end: 20241023
  3. GENTAMICIN [Suspect]
     Active Substance: GENTAMICIN
     Dosage: UNK
  4. FENTANYL [Suspect]
     Active Substance: FENTANYL
     Dosage: UNK
  5. PROPOFOL [Suspect]
     Active Substance: PROPOFOL
     Dosage: UNK
  6. MIDAZOLAM [Suspect]
     Active Substance: MIDAZOLAM
     Dosage: UNK

REACTIONS (2)
  - Hypoxia [Recovered/Resolved]
  - Hypotension [Unknown]

NARRATIVE: CASE EVENT DATE: 20241023
